FAERS Safety Report 8553212-X (Version None)
Quarter: 2012Q3

REPORT INFORMATION
  Report Type: 
  Country: None (occurrence: None)
  Receive Date: 20120731
  Receipt Date: 20120313
  Transmission Date: 20120928
  Serious: Yes (Hospitalization, Other)
  Sender: FDA-Public Use
  Company Number: US-BAYER-201024719NA

PATIENT
  Age: 28 Year
  Sex: Female
  Weight: 106.82 kg

DRUGS (10)
  1. DIFLUCAN [Concomitant]
  2. LEXAPRO [Concomitant]
     Indication: PSYCHIATRIC SYMPTOM
     Dosage: UNK UNK, UNK
     Route: 065
     Dates: start: 20030101
  3. YASMIN [Suspect]
     Route: 048
     Dates: start: 20051201, end: 20060101
  4. LODINE [Concomitant]
     Indication: COSTOCHONDRITIS
     Route: 048
  5. CIPROFLOXACIN HCL [Concomitant]
     Indication: PYELONEPHRITIS
     Dosage: PRESCRIBED FOR 14 DAYS
     Dates: start: 20060113
  6. CIPROFLOXACIN HCL [Concomitant]
     Indication: URINARY TRACT INFECTION
  7. LEXAPRO [Concomitant]
     Indication: DEPRESSED MOOD
     Dosage: UNK UNK, UNK
     Route: 065
     Dates: start: 20050101
  8. LEVOXYL [Concomitant]
  9. PHENERGAN HCL [Concomitant]
  10. LEXAPRO [Concomitant]
     Indication: ANXIETY

REACTIONS (8)
  - OEDEMA PERIPHERAL [None]
  - HYPOKALAEMIA [None]
  - THROMBOPHLEBITIS [None]
  - DEEP VEIN THROMBOSIS [None]
  - THROMBOSIS [None]
  - PAIN IN EXTREMITY [None]
  - ERYTHEMA [None]
  - POST THROMBOTIC SYNDROME [None]
